FAERS Safety Report 25141136 (Version 1)
Quarter: 2025Q1

REPORT INFORMATION
  Report Type: Other
  Country: CA (occurrence: CA)
  Receive Date: 20250331
  Receipt Date: 20250331
  Transmission Date: 20250409
  Serious: Yes (Hospitalization)
  Sender: TOLMAR
  Company Number: CA-20250321-e207d9

PATIENT
  Age: 81 Year
  Sex: Male

DRUGS (4)
  1. ELIGARD [Suspect]
     Active Substance: LEUPROLIDE ACETATE
     Indication: Prostate cancer
     Dosage: 22.5 MILLIGRAM, Q 3 MONTH
     Route: 058
     Dates: start: 20241227
  2. ELIGARD [Suspect]
     Active Substance: LEUPROLIDE ACETATE
     Dosage: 22.5 MILLIGRAM, Q 3 MONTH
     Route: 058
     Dates: start: 20181011
  3. COVID-19 VACCINE [Concomitant]
     Indication: Product used for unknown indication
     Dates: start: 20210329
  4. COVID-19 VACCINE [Concomitant]
     Dates: start: 20210621

REACTIONS (2)
  - Fall [Unknown]
  - Immobile [Unknown]

NARRATIVE: CASE EVENT DATE: 20250320
